FAERS Safety Report 20963623 (Version 1)
Quarter: 2022Q2

REPORT INFORMATION
  Report Type: Spontaneous
  Country: GB (occurrence: GB)
  Receive Date: 20220615
  Receipt Date: 20220615
  Transmission Date: 20220721
  Serious: Yes (Other)
  Sender: FDA-Public Use
  Company Number: GB-ADVANZ PHARMA-202206003269

PATIENT
  Age: 63 Year
  Sex: Male

DRUGS (4)
  1. METHOTREXATE SODIUM [Suspect]
     Active Substance: METHOTREXATE SODIUM
     Indication: VEXAS syndrome
     Dosage: 15 MG
  2. PREDNISOLONE [Suspect]
     Active Substance: PREDNISOLONE
     Indication: VEXAS syndrome
     Dosage: 40 MG
  3. PREDNISOLONE [Suspect]
     Active Substance: PREDNISOLONE
     Dosage: 15 MG
  4. PREDNISOLONE [Suspect]
     Active Substance: PREDNISOLONE
     Dosage: 20 MG (INCREASED)

REACTIONS (12)
  - VEXAS syndrome [Unknown]
  - Disease progression [Unknown]
  - Therapeutic response decreased [Unknown]
  - Pyrexia [Unknown]
  - Night sweats [Unknown]
  - Arthralgia [Unknown]
  - Cytopenia [Unknown]
  - Scleritis [Unknown]
  - Arthralgia [Unknown]
  - Vasculitic rash [Unknown]
  - Chest pain [Unknown]
  - Dyspnoea exertional [Unknown]
